FAERS Safety Report 5653533-4 (Version None)
Quarter: 2008Q1

REPORT INFORMATION
  Report Type: 
  Country: None (occurrence: None)
  Receive Date: 20080131
  Receipt Date: 20071024
  Transmission Date: 20080703
  Serious: No
  Sender: FDA-Public Use
  Company Number: US200710006246

PATIENT
  Age: 64 Year
  Sex: Female
  Weight: 99.8 kg

DRUGS (6)
  1. BYETTA [Suspect]
     Indication: TYPE 2 DIABETES MELLITUS
     Dosage: 5 UG, 2/D, SUBCUTANEOUS ; 10 UG, 2/D, SUBCUTANEOUS ; 10 UG, SUBCUTANEOUS
     Route: 058
     Dates: start: 20070601, end: 20070701
  2. BYETTA [Suspect]
     Indication: TYPE 2 DIABETES MELLITUS
     Dosage: 5 UG, 2/D, SUBCUTANEOUS ; 10 UG, 2/D, SUBCUTANEOUS ; 10 UG, SUBCUTANEOUS
     Route: 058
     Dates: start: 20070701
  3. METFORMIN HCL [Concomitant]
  4. AMARYL [Concomitant]
  5. HYZAAR [Concomitant]
  6. LIPITOR [Concomitant]

REACTIONS (2)
  - INCORRECT DOSE ADMINISTERED [None]
  - WEIGHT DECREASED [None]
